FAERS Safety Report 18348863 (Version 3)
Quarter: 2020Q4

REPORT INFORMATION
  Report Type: Spontaneous
  Country: BR (occurrence: BR)
  Receive Date: 20201006
  Receipt Date: 20201120
  Transmission Date: 20210114
  Serious: Yes (Other)
  Sender: FDA-Public Use
  Company Number: BR-GLAXOSMITHKLINE-BR2020AMR194818

PATIENT
  Age: 73 Year
  Sex: Male

DRUGS (1)
  1. ANORO ELLIPTA [Suspect]
     Active Substance: UMECLIDINIUM BROMIDE\VILANTEROL TRIFENATATE
     Indication: CHRONIC OBSTRUCTIVE PULMONARY DISEASE
     Dosage: 1 PUFF(S), QD, 62.5/25 MCG

REACTIONS (4)
  - Retinal detachment [Not Recovered/Not Resolved]
  - Reading disorder [Not Recovered/Not Resolved]
  - Product complaint [Unknown]
  - Respiratory disorder [Not Recovered/Not Resolved]
